FAERS Safety Report 8145928-4 (Version None)
Quarter: 2012Q1

REPORT INFORMATION
  Report Type: 
  Country: None (occurrence: None)
  Receive Date: 20120217
  Receipt Date: 20110627
  Transmission Date: 20120608
  Serious: No
  Sender: FDA-Public Use
  Company Number: US-ABBOTT-11P-163-0834632-00

PATIENT
  Sex: Male
  Weight: 98.972 kg

DRUGS (1)
  1. SIMCOR [Suspect]
     Indication: BLOOD CHOLESTEROL ABNORMAL
     Dates: end: 20110501

REACTIONS (2)
  - PRURITUS [None]
  - DRUG DOSE OMISSION [None]
